FAERS Safety Report 4823526-5 (Version None)
Quarter: 2005Q4

REPORT INFORMATION
  Report Type: 
  Country: None (occurrence: None)
  Receive Date: 20051107
  Receipt Date: 20051031
  Transmission Date: 20060501
  Serious: Yes (Death, Hospitalization, Congenital Anomaly, Other)
  Sender: FDA-Public Use
  Company Number: 2005035412

PATIENT
  Sex: Female
  Weight: 2.92 kg

DRUGS (4)
  1. ATORVASTATIN CALCIUM [Suspect]
     Indication: DIABETES MELLITUS NON-INSULIN-DEPENDENT
     Dates: end: 20041102
  2. GLICLAZIDE (GLICLAZIDE) [Suspect]
     Indication: DIABETES MELLITUS NON-INSULIN-DEPENDENT
     Dates: end: 20041102
  3. METFORMIN HCL [Suspect]
     Indication: DIABETES MELLITUS NON-INSULIN-DEPENDENT
     Dates: end: 20041102
  4. INSULIN [Concomitant]

REACTIONS (4)
  - CONGENITAL HEPATOMEGALY [None]
  - DRUG EXPOSURE DURING PREGNANCY [None]
  - SINGLE FUNCTIONAL KIDNEY [None]
  - STILLBIRTH [None]
